FAERS Safety Report 24025729 (Version 1)
Quarter: 2024Q2

REPORT INFORMATION
  Report Type: Report from Study
  Country: RS (occurrence: RS)
  Receive Date: 20240628
  Receipt Date: 20240628
  Transmission Date: 20240715
  Serious: No
  Sender: FDA-Public Use
  Company Number: RS-ROCHE-3189936

PATIENT
  Age: 73 Year
  Sex: Female
  Weight: 85.0 kg

DRUGS (22)
  1. ALECTINIB [Suspect]
     Active Substance: ALECTINIB
     Indication: Non-small cell lung cancer metastatic
     Route: 048
     Dates: start: 20220309
  2. METFORMIN HYDROCHLORIDE [Concomitant]
     Active Substance: METFORMIN HYDROCHLORIDE
     Indication: Type 2 diabetes mellitus
     Route: 048
     Dates: end: 20220908
  3. METFORMIN HYDROCHLORIDE [Concomitant]
     Active Substance: METFORMIN HYDROCHLORIDE
     Dosage: FREQUENCY TEXT:EVERY OTHER DAY
     Route: 048
     Dates: start: 20220908
  4. METFORMIN HYDROCHLORIDE [Concomitant]
     Active Substance: METFORMIN HYDROCHLORIDE
     Route: 048
     Dates: end: 20220907
  5. GLICLAZIDE [Concomitant]
     Active Substance: GLICLAZIDE
     Indication: Type 2 diabetes mellitus
     Route: 048
  6. ZOFENOPRIL CALCIUM [Concomitant]
     Active Substance: ZOFENOPRIL CALCIUM
     Indication: Hypertension
     Route: 048
     Dates: end: 20220517
  7. ZOFENOPRIL CALCIUM [Concomitant]
     Active Substance: ZOFENOPRIL CALCIUM
     Route: 048
     Dates: start: 20221118
  8. TRIMETAZIDINE DIHYDROCHLORIDE [Concomitant]
     Active Substance: TRIMETAZIDINE DIHYDROCHLORIDE
     Indication: Hypertension
     Route: 048
     Dates: end: 20220908
  9. TRIMETAZIDINE DIHYDROCHLORIDE [Concomitant]
     Active Substance: TRIMETAZIDINE DIHYDROCHLORIDE
     Route: 048
     Dates: end: 20221118
  10. TENSEC [Concomitant]
     Indication: Hypertension
     Route: 048
     Dates: end: 20220516
  11. TENSEC [Concomitant]
     Route: 048
     Dates: start: 20220517
  12. DILACOR (SERBIA) [Concomitant]
     Indication: Atrial fibrillation
     Route: 048
     Dates: start: 20220518, end: 20221118
  13. DILACOR (SERBIA) [Concomitant]
     Route: 048
     Dates: end: 20220516
  14. METHYLDOPA [Concomitant]
     Active Substance: METHYLDOPA
     Indication: Hypertension
     Route: 048
     Dates: start: 20220517, end: 20221118
  15. LASIX [Concomitant]
     Active Substance: FUROSEMIDE
     Indication: Hypertension
     Route: 048
     Dates: end: 20220907
  16. LASIX [Concomitant]
     Active Substance: FUROSEMIDE
     Route: 048
     Dates: start: 20220908
  17. SPIRONOLACTONE [Concomitant]
     Active Substance: SPIRONOLACTONE
     Indication: Hypertension
     Route: 048
     Dates: end: 20220907
  18. SPIRONOLACTONE [Concomitant]
     Active Substance: SPIRONOLACTONE
     Indication: Cardiomyopathy
     Route: 048
     Dates: start: 20220908
  19. ROSUVASTATIN [Concomitant]
     Active Substance: ROSUVASTATIN
     Indication: Type V hyperlipidaemia
     Route: 048
     Dates: end: 20221118
  20. DIAZEPAM [Concomitant]
     Active Substance: DIAZEPAM
     Indication: Neurosis
     Route: 048
  21. FOLAN (SERBIA) [Concomitant]
     Indication: Anaemia
     Route: 048
     Dates: start: 20220517
  22. PLENDIL [Concomitant]
     Active Substance: FELODIPINE
     Indication: Hypertension
     Route: 048
     Dates: end: 20220517

REACTIONS (2)
  - Blood bilirubin increased [Recovered/Resolved]
  - Asthenia [Recovered/Resolved]

NARRATIVE: CASE EVENT DATE: 20220405
